FAERS Safety Report 7183598-2 (Version None)
Quarter: 2010Q4

REPORT INFORMATION
  Report Type: 
  Country: None (occurrence: None)
  Receive Date: 20101220
  Receipt Date: 20101220
  Transmission Date: 20110411
  Serious: Yes (Hospitalization)
  Sender: FDA-Public Use
  Company Number: None

PATIENT
  Age: 64 Year
  Sex: Male
  Weight: 101.5 kg

DRUGS (18)
  1. ASPIRIN [Suspect]
     Indication: CORONARY ARTERY DISEASE
     Dosage: 325 MG DAILY PO
     Route: 048
  2. IBUPROFEN [Suspect]
     Indication: CORONARY ARTERY DISEASE
     Dosage: 800 MG TID PRN PO
     Route: 048
  3. PLAVIX [Suspect]
  4. ZOCOR [Concomitant]
  5. DOXASIN [Concomitant]
  6. GLUCOPHAGE [Concomitant]
  7. LASIX [Concomitant]
  8. GLIPIZIDE [Concomitant]
  9. PROCARDIA XL [Concomitant]
  10. JANUVIA [Concomitant]
  11. PROSCAR [Concomitant]
  12. CARVEDILOL [Concomitant]
  13. ULTRACET [Concomitant]
  14. PEPCID [Concomitant]
  15. ACTOS [Concomitant]
  16. HYDROCODONE BITARTRATE + ACETAMINOPHEN [Concomitant]
  17. NEXIUM [Concomitant]
  18. NITROGLYCERIN [Concomitant]

REACTIONS (2)
  - DIVERTICULITIS INTESTINAL HAEMORRHAGIC [None]
  - HAEMORRHOIDAL HAEMORRHAGE [None]
